FAERS Safety Report 4318492-5 (Version None)
Quarter: 2004Q1

REPORT INFORMATION
  Report Type: 
  Country: None (occurrence: None)
  Receive Date: 20040316
  Receipt Date: 20040316
  Transmission Date: 20041129
  Serious: No
  Sender: FDA-Public Use
  Company Number: None

PATIENT
  Age: 41 Year
  Sex: Male

DRUGS (5)
  1. NEVIRAPINE 200 MG [Suspect]
     Indication: HIV INFECTION
     Dosage: 200 MG BID PO
     Route: 048
     Dates: start: 20031021, end: 20031205
  2. LEVOFLOXACIN [Suspect]
     Indication: HIV INFECTION
     Dosage: 500 MG BID PO
     Route: 048
     Dates: start: 20031117, end: 20051201
  3. TENOFOVIR [Concomitant]
  4. STAVUDINE [Concomitant]
  5. METOPROLOL [Concomitant]

REACTIONS (2)
  - GRANULOCYTOPENIA [None]
  - RENAL FAILURE ACUTE [None]
